FAERS Safety Report 17796190 (Version 2)
Quarter: 2020Q3

REPORT INFORMATION
  Report Type: Spontaneous
  Country: DE (occurrence: DE)
  Receive Date: 20200517
  Receipt Date: 20200702
  Transmission Date: 20201102
  Serious: Yes (Other)
  Sender: FDA-Public Use
  Company Number: NVSC2020DE134173

PATIENT
  Sex: Female
  Weight: 50 kg

DRUGS (2)
  1. EXJADE [Suspect]
     Active Substance: DEFERASIROX
     Indication: MYELODYSPLASTIC SYNDROME
     Dosage: 360 MG, QD
     Route: 065
     Dates: start: 201702
  2. EXJADE [Suspect]
     Active Substance: DEFERASIROX
     Dosage: 180 MG, QD(3.6 MG/KG BODY WEIGHT PER DAY)
     Route: 065

REACTIONS (4)
  - Splenomegaly [Unknown]
  - General physical condition abnormal [Unknown]
  - Atrial fibrillation [Unknown]
  - Haemoglobin decreased [Unknown]

NARRATIVE: CASE EVENT DATE: 202005
